FAERS Safety Report 9819646 (Version 1)
Quarter: 2014Q1

REPORT INFORMATION
  Report Type: Spontaneous
  Country: US (occurrence: None)
  Receive Date: 20140113
  Receipt Date: 20140113
  Transmission Date: 20141002
  Serious: Yes (Death, Other)
  Sender: FDA-Public Use
  Company Number: 2013STPI000524

PATIENT
  Age: 59 Year
  Sex: Male
  Weight: 85.73 kg

DRUGS (1)
  1. MATULANE [Suspect]
     Indication: BRAIN NEOPLASM MALIGNANT
     Route: 048
     Dates: start: 201310, end: 201312

REACTIONS (4)
  - Pneumonitis [None]
  - Pancytopenia [None]
  - Brain neoplasm malignant [None]
  - Malignant neoplasm progression [None]
